FAERS Safety Report 21113809 (Version 6)
Quarter: 2023Q2

REPORT INFORMATION
  Report Type: Spontaneous
  Country: US (occurrence: US)
  Receive Date: 20220721
  Receipt Date: 20230512
  Transmission Date: 20230721
  Serious: No
  Sender: FDA-Public Use
  Company Number: US-PFIZER INC-PV202200026437

PATIENT
  Age: 66 Year
  Sex: Female

DRUGS (2)
  1. XELJANZ [Suspect]
     Active Substance: TOFACITINIB CITRATE
     Indication: Rheumatoid arthritis
     Dosage: 5 MG, 2X/DAY
     Route: 048
     Dates: start: 20220712
  2. XELJANZ [Suspect]
     Active Substance: TOFACITINIB CITRATE
     Dosage: EVERY MORNING
     Route: 048
     Dates: start: 20220712

REACTIONS (15)
  - Headache [Recovered/Resolved]
  - Rash [Recovering/Resolving]
  - Oral pain [Recovered/Resolved]
  - Oropharyngeal discomfort [Not Recovered/Not Resolved]
  - Weight decreased [Unknown]
  - Arthralgia [Unknown]
  - Dyskinesia [Recovered/Resolved]
  - Illness [Recovering/Resolving]
  - Viral infection [Recovering/Resolving]
  - Oropharyngeal pain [Recovering/Resolving]
  - Sinus pain [Recovering/Resolving]
  - Sinus headache [Recovering/Resolving]
  - Laryngitis viral [Recovering/Resolving]
  - Intentional product misuse [Unknown]
  - Off label use [Unknown]

NARRATIVE: CASE EVENT DATE: 20220101
